FAERS Safety Report 12631706 (Version 2)
Quarter: 2016Q3

REPORT INFORMATION
  Report Type: Spontaneous
  Country: US (occurrence: US)
  Receive Date: 20160808
  Receipt Date: 20160808
  Transmission Date: 20161109
  Serious: No
  Sender: FDA-Public Use
  Company Number: US-BEH-2016060761

PATIENT
  Sex: Female
  Weight: 51 kg

DRUGS (34)
  1. EPIPEN [Concomitant]
     Active Substance: EPINEPHRINE
  2. HYOMAX [Concomitant]
     Active Substance: HYOSCYAMINE SULFATE
  3. XIFAXAN [Concomitant]
     Active Substance: RIFAXIMIN
  4. ACETAMINOPHEN. [Concomitant]
     Active Substance: ACETAMINOPHEN
  5. ZENPEP [Concomitant]
     Active Substance: PANCRELIPASE AMYLASE\PANCRELIPASE LIPASE\PANCRELIPASE PROTEASE
  6. LAMOTRIGINE. [Concomitant]
     Active Substance: LAMOTRIGINE
  7. CHLORHEXIDINE [Concomitant]
     Active Substance: CHLORHEXIDINE
  8. ASPIRIN. [Concomitant]
     Active Substance: ASPIRIN
  9. FIORICET [Concomitant]
     Active Substance: ACETAMINOPHEN\BUTALBITAL\CAFFEINE
  10. DIFLUCAN [Concomitant]
     Active Substance: FLUCONAZOLE
  11. MAXALT [Concomitant]
     Active Substance: RIZATRIPTAN BENZOATE
  12. CLOBETASOL [Concomitant]
     Active Substance: CLOBETASOL
  13. SPIRONOLACTONE. [Concomitant]
     Active Substance: SPIRONOLACTONE
  14. ESTRADIOL. [Concomitant]
     Active Substance: ESTRADIOL
  15. HYDROXYZINE [Concomitant]
     Active Substance: HYDROXYZINE\HYDROXYZINE HYDROCHLORIDE
  16. LIDOCAINE. [Concomitant]
     Active Substance: LIDOCAINE
  17. BISOPROLOL [Concomitant]
     Active Substance: BISOPROLOL
  18. LOPERAMIDE [Concomitant]
     Active Substance: LOPERAMIDE
  19. CALCIUM [Concomitant]
     Active Substance: CALCIUM
  20. DIPHENHYDRAMINE. [Concomitant]
     Active Substance: DIPHENHYDRAMINE
  21. PROBIOTIC [Concomitant]
     Active Substance: PROBIOTICS NOS
  22. COMBIVENT [Concomitant]
     Active Substance: ALBUTEROL SULFATE\IPRATROPIUM BROMIDE
  23. PREMARIN [Concomitant]
     Active Substance: ESTROGENS, CONJUGATED
  24. DULERA [Concomitant]
     Active Substance: FORMOTEROL FUMARATE DIHYDRATE\MOMETASONE FUROATE
  25. METOPROLOL. [Concomitant]
     Active Substance: METOPROLOL
  26. OLUX [Concomitant]
     Active Substance: CLOBETASOL PROPIONATE
  27. MUPIROCIN. [Concomitant]
     Active Substance: MUPIROCIN
  28. VALTREX [Concomitant]
     Active Substance: VALACYCLOVIR HYDROCHLORIDE
  29. OMEPRAZOLE. [Concomitant]
     Active Substance: OMEPRAZOLE
  30. HIZENTRA [Suspect]
     Active Substance: HUMAN IMMUNOGLOBULIN G
     Indication: IMMUNODEFICIENCY COMMON VARIABLE
     Route: 058
     Dates: start: 20140529
  31. BACLOFEN. [Concomitant]
     Active Substance: BACLOFEN
  32. ONDASETRON [Concomitant]
     Active Substance: ONDANSETRON
  33. QVAR [Concomitant]
     Active Substance: BECLOMETHASONE DIPROPIONATE
  34. MELATONIN [Concomitant]
     Active Substance: MELATONIN

REACTIONS (2)
  - Oral candidiasis [Unknown]
  - Sinusitis [Unknown]
